FAERS Safety Report 6072482-3 (Version None)
Quarter: 2009Q1

REPORT INFORMATION
  Report Type: 
  Country: None (occurrence: None)
  Receive Date: 20090210
  Receipt Date: 20090129
  Transmission Date: 20090719
  Serious: Yes (Death)
  Sender: FDA-Public Use
  Company Number: ES-ROCHE-611538

PATIENT
  Age: 75 Year
  Sex: Male

DRUGS (2)
  1. XELODA [Suspect]
     Route: 065
  2. OXALIPLATIN [Concomitant]

REACTIONS (1)
  - DRUG TOXICITY [None]
